FAERS Safety Report 7513937-1 (Version None)
Quarter: 2011Q2

REPORT INFORMATION
  Report Type: 
  Country: None (occurrence: None)
  Receive Date: 20110531
  Receipt Date: 20110518
  Transmission Date: 20111010
  Serious: Yes (Other)
  Sender: FDA-Public Use
  Company Number: PHHY2011IT42689

PATIENT
  Sex: Male

DRUGS (1)
  1. OXALIPLATIN [Suspect]

REACTIONS (4)
  - ANAEMIA [None]
  - PARAESTHESIA [None]
  - ASTHENIA [None]
  - BLOOD IRON INCREASED [None]
